FAERS Safety Report 25565006 (Version 2)
Quarter: 2025Q3

REPORT INFORMATION
  Report Type: Report from Study
  Country: EU (occurrence: EU)
  Receive Date: 20250716
  Receipt Date: 20250724
  Transmission Date: 20251020
  Serious: Yes (Other)
  Sender: MYLAN
  Company Number: EU-MYLANLABS-2025M1057985

PATIENT
  Age: 57 Year
  Sex: Female

DRUGS (4)
  1. REMIFENTANIL [Interacting]
     Active Substance: REMIFENTANIL
     Indication: Anaesthesia
  2. LIDOCAINE [Interacting]
     Active Substance: LIDOCAINE
     Indication: Anaesthesia
  3. PROPOFOL [Interacting]
     Active Substance: PROPOFOL
     Indication: Anaesthesia
  4. AMITRIPTYLINE [Interacting]
     Active Substance: AMITRIPTYLINE
     Indication: Tension headache

REACTIONS (2)
  - Drug interaction [Unknown]
  - Hypotension [Unknown]
